FAERS Safety Report 18762407 (Version 1)
Quarter: 2021Q1

REPORT INFORMATION
  Report Type: Spontaneous
  Country: US (occurrence: US)
  Receive Date: 20210118
  Receipt Date: 20210118
  Transmission Date: 20210419
  Serious: No
  Sender: FDA-Public Use
  Company Number: None

PATIENT
  Age: 42 Year
  Sex: Female

DRUGS (1)
  1. LUPRON DEPOT [Suspect]
     Active Substance: LEUPROLIDE ACETATE
     Dosage: ?          OTHER FREQUENCY:UNKNOWN;?
     Route: 030
     Dates: start: 20201020

REACTIONS (6)
  - Pruritus [None]
  - Urticaria [None]
  - Erythema [None]
  - Paraesthesia oral [None]
  - Therapy cessation [None]
  - Lip pain [None]

NARRATIVE: CASE EVENT DATE: 20201020
